FAERS Safety Report 13338904 (Version 1)
Quarter: 2017Q1

REPORT INFORMATION
  Report Type: Spontaneous
  Country: US (occurrence: US)
  Receive Date: 20170315
  Receipt Date: 20170315
  Transmission Date: 20170428
  Serious: Yes (Congenital Anomaly, Other)
  Sender: FDA-Public Use
  Company Number: PHEH2017US007365

PATIENT

DRUGS (1)
  1. ZOFRAN [Suspect]
     Active Substance: ONDANSETRON HYDROCHLORIDE
     Indication: FOETAL EXPOSURE DURING PREGNANCY
     Route: 064

REACTIONS (10)
  - Subvalvular aortic stenosis [Unknown]
  - Congenital tricuspid valve stenosis [Unknown]
  - Univentricular heart [Unknown]
  - Congenital aortic stenosis [Unknown]
  - Hypertrophic cardiomyopathy [Unknown]
  - Tricuspid valve stenosis [Unknown]
  - Ventricular septal defect [Unknown]
  - Foetal exposure during pregnancy [Unknown]
  - Injury [Unknown]
  - Aorta hypoplasia [Unknown]
